FAERS Safety Report 13378015 (Version 3)
Quarter: 2017Q2

REPORT INFORMATION
  Report Type: Spontaneous
  Country: JP (occurrence: JP)
  Receive Date: 20170328
  Receipt Date: 20170419
  Transmission Date: 20170830
  Serious: Yes (Life-Threatening, Other)
  Sender: FDA-Public Use
  Company Number: JP-PFIZER INC-2017128168

PATIENT
  Age: 71 Year
  Sex: Male
  Weight: 51.3 kg

DRUGS (6)
  1. PACLITAXEL 100MG/16.7ML HOSPIRA [Suspect]
     Active Substance: PACLITAXEL
     Dosage: 80 MG, 1X/DAY
     Route: 041
     Dates: start: 20170111
  2. CYRAMZA [Concomitant]
     Active Substance: RAMUCIRUMAB
     Indication: GASTRIC CANCER
     Dosage: 400 MG, 1X/DAY
     Dates: start: 20161207, end: 20170308
  3. PACLITAXEL 100MG/16.7ML HOSPIRA [Suspect]
     Active Substance: PACLITAXEL
     Dosage: 70 MG, 1X/DAY
     Route: 041
     Dates: start: 20170308
  4. PACLITAXEL 100MG/16.7ML HOSPIRA [Suspect]
     Active Substance: PACLITAXEL
     Indication: METASTASES TO LIVER
     Dosage: 100 MG, 1X/DAY
     Route: 041
     Dates: start: 20170101
  5. CYRAMZA [Concomitant]
     Active Substance: RAMUCIRUMAB
     Indication: METASTASES TO LIVER
  6. PACLITAXEL 100MG/16.7ML HOSPIRA [Suspect]
     Active Substance: PACLITAXEL
     Indication: GASTRIC CANCER
     Dosage: 120 MG, 1X/DAY
     Route: 041
     Dates: start: 20161207, end: 20161214

REACTIONS (6)
  - Ascites [Unknown]
  - Platelet count decreased [Recovered/Resolved]
  - Gastrointestinal oedema [Unknown]
  - Neutrophil count decreased [Recovered/Resolved]
  - Hepatic atrophy [Unknown]
  - Bone marrow failure [Unknown]

NARRATIVE: CASE EVENT DATE: 20161221
